FAERS Safety Report 5199622-2 (Version None)
Quarter: 2007Q1

REPORT INFORMATION
  Report Type: 
  Country: None (occurrence: None)
  Receive Date: 20070103
  Receipt Date: 20070103
  Transmission Date: 20070707
  Serious: Yes (Hospitalization)
  Sender: FDA-Public Use
  Company Number: None

PATIENT
  Sex: Female
  Weight: 54.4 kg

DRUGS (18)
  1. CETUXIMAB, 250 MG/M2, BRISTOL MEYERS SQUIBB [Suspect]
     Indication: CERVIX CARCINOMA
     Dosage: 405 MG WEEKLY IV
     Route: 042
     Dates: start: 20060914
  2. CETUXIMAB, 250 MG/M2, BRISTOL MEYERS SQUIBB [Suspect]
     Indication: CERVIX CARCINOMA
     Dosage: 405 MG WEEKLY IV
     Route: 042
     Dates: start: 20060921
  3. CETUXIMAB, 250 MG/M2 BRISTOL MEYERS SQUIBB [Suspect]
     Indication: CERVIX CARCINOMA
     Dosage: 390 MG WEEKLY IV
     Route: 042
     Dates: start: 20061003
  4. CETUXIMAB, 250 MG/M2 BRISTOL MEYERS SQUIBB [Suspect]
     Indication: CERVIX CARCINOMA
     Dosage: 390 MG WEEKLY IV
     Route: 042
     Dates: start: 20061013
  5. CETUXIMAB, 250 MG/M2 BRISTOL MEYERS SQUIBB [Suspect]
     Indication: CERVIX CARCINOMA
     Dosage: 390 MG WEEKLY IV
     Route: 042
     Dates: start: 20061019
  6. CETUXIMAB, 250 MG/M2 BRISTOL MEYERS SQUIBB [Suspect]
     Indication: CERVIX CARCINOMA
     Dosage: 390 MG WEEKLY IV
     Route: 042
     Dates: start: 20061026
  7. LISINOPRIL AND HYDROCHLOROTHIAZIDE [Concomitant]
  8. OXYCODONE + ACETAMINOPHEN [Concomitant]
  9. FAMOTIDINE [Concomitant]
  10. POTASSIUM CHLORIDE [Concomitant]
  11. CIPROFLOXACIN [Concomitant]
  12. APREPITANT [Concomitant]
  13. DEXAMETHASONE [Concomitant]
  14. PROCHLORPERAZINE [Concomitant]
  15. LOPERAMIDE HCL [Concomitant]
  16. MICONAZOLE NITRATE [Concomitant]
  17. BALSAM PERU,CASTER OIL AND TRYPSIN [Concomitant]
  18. ALUMINUM W/ MAGNESIUM HYDROXIDE/NYSTATIN/DIPHENHYDRAMINE [Concomitant]

REACTIONS (23)
  - ANAEMIA [None]
  - ASTHENIA [None]
  - ATRIAL FIBRILLATION [None]
  - BLOOD POTASSIUM DECREASED [None]
  - CANDIDIASIS [None]
  - CARDIAC FAILURE CONGESTIVE [None]
  - CULTURE URINE POSITIVE [None]
  - DEHYDRATION [None]
  - DIARRHOEA [None]
  - GASTROINTESTINAL HAEMORRHAGE [None]
  - HYDRONEPHROSIS [None]
  - HYDROURETER [None]
  - HYPOTENSION [None]
  - MENTAL STATUS CHANGES [None]
  - NAUSEA [None]
  - NEUTROPENIA [None]
  - PROCEDURAL COMPLICATION [None]
  - PULMONARY OEDEMA [None]
  - PYREXIA [None]
  - STAPHYLOCOCCAL INFECTION [None]
  - TACHYCARDIA [None]
  - THROMBOCYTOPENIA [None]
  - WEIGHT DECREASED [None]
